FAERS Safety Report 7770267-0 (Version None)
Quarter: 2011Q3

REPORT INFORMATION
  Report Type: 
  Country: None (occurrence: None)
  Receive Date: 20110922
  Receipt Date: 20100113
  Transmission Date: 20111222
  Serious: Yes (Other)
  Sender: FDA-Public Use
  Company Number: US-ASTRAZENECA-2009UW19857

PATIENT
  Age: 20260 Day
  Sex: Male
  Weight: 85.7 kg

DRUGS (10)
  1. CELEXA [Concomitant]
     Dosage: 20 MG UTD, 40 MG 1/2 TABLET IN THE MORNING AND 1 TABLET AT BEDTIME
     Dates: start: 20011220
  2. ALPRAZOLAM [Concomitant]
     Indication: DEPRESSION
     Dosage: TAKE 1 TABLET 2-3 TIMES A DAY AS NEEDED
     Dates: start: 20020207
  3. WELLBUTRIN SR [Concomitant]
     Route: 048
     Dates: start: 20020125
  4. TRICOR [Concomitant]
     Dates: start: 20060322
  5. DIAZEPAM [Concomitant]
     Indication: ANXIETY
     Dosage: TK 1 T AT 12 NOON
     Route: 048
     Dates: start: 20020227
  6. CLONAZEPAM [Concomitant]
     Indication: ANXIETY
     Dosage: TAKE 1 TABLET IN THE MORNING AND 1 TABLET IN THE AFTERNOON
     Dates: start: 20020314
  7. EFFEXOR [Concomitant]
     Dates: start: 20040101
  8. ZOCOR [Concomitant]
     Dates: start: 20040101
  9. SEROQUEL [Suspect]
     Route: 048
     Dates: start: 20020207
  10. NORTRIPTYLINE HCL [Concomitant]
     Dates: start: 20040101

REACTIONS (2)
  - ERECTILE DYSFUNCTION [None]
  - DIABETES MELLITUS INADEQUATE CONTROL [None]
